FAERS Safety Report 23139299 (Version 2)
Quarter: 2024Q1

REPORT INFORMATION
  Report Type: Report from Study
  Country: US (occurrence: US)
  Receive Date: 20231102
  Receipt Date: 20240111
  Transmission Date: 20240409
  Serious: No
  Sender: FDA-Public Use
  Company Number: US-002147023-NVSC2023US233947

PATIENT
  Sex: Male

DRUGS (1)
  1. KESIMPTA [Suspect]
     Active Substance: OFATUMUMAB
     Indication: Product used for unknown indication
     Dosage: 20 MG, QMO
     Route: 058

REACTIONS (11)
  - Device leakage [Unknown]
  - Fumbling [Unknown]
  - Pain in extremity [Unknown]
  - Fatigue [Unknown]
  - Brain fog [Unknown]
  - Spinal disorder [Unknown]
  - Influenza [Unknown]
  - COVID-19 [Unknown]
  - Vomiting [Unknown]
  - Diarrhoea [Unknown]
  - Hyperhidrosis [Unknown]
